FAERS Safety Report 22017102 (Version 1)
Quarter: 2023Q1

REPORT INFORMATION
  Report Type: Other
  Country: None (occurrence: CN)
  Receive Date: 20230221
  Receipt Date: 20230221
  Transmission Date: 20230418
  Serious: Yes (Other)
  Sender: FDA-Public Use
  Company Number: CN-B.Braun Medical Inc.-2138246

PATIENT
  Age: 55 Year
  Sex: Male

DRUGS (3)
  1. LIDOCAINE HYDROCHLORIDE AND DEXTROSE [Suspect]
     Active Substance: LIDOCAINE HYDROCHLORIDE
     Indication: Arrhythmia
  2. NIFEKALANT [Suspect]
     Active Substance: NIFEKALANT
  3. MAGNESIUM [Suspect]
     Active Substance: MAGNESIUM

REACTIONS (1)
  - Drug ineffective [Unknown]
